FAERS Safety Report 4517629-2 (Version None)
Quarter: 2004Q4

REPORT INFORMATION
  Report Type: 
  Country: None (occurrence: None)
  Receive Date: 20041203
  Receipt Date: 20041105
  Transmission Date: 20050328
  Serious: Yes (Other)
  Sender: FDA-Public Use
  Company Number: PHRM2004FR03327

PATIENT
  Age: 70 Year
  Sex: Female
  Weight: 64 kg

DRUGS (11)
  1. COLTRAMYL [Suspect]
  2. AMOXICILLIN [Suspect]
     Indication: PHARYNGITIS
     Dates: end: 20040401
  3. LIPANTHYL [Suspect]
     Route: 048
     Dates: start: 20040309, end: 20040510
  4. SERETIDE [Concomitant]
     Indication: BRONCHITIS CHRONIC
  5. GLEEVEC [Suspect]
     Indication: CHRONIC MYELOID LEUKAEMIA
     Dosage: 400 MG DAILY
     Route: 048
     Dates: start: 20040209, end: 20040617
  6. GLEEVEC [Suspect]
     Dosage: 100 MG DAILY
     Route: 048
     Dates: start: 20040715, end: 20040721
  7. GLEEVEC [Suspect]
     Dosage: 200 MG DAILY
     Route: 048
     Dates: start: 20040722, end: 20040728
  8. GLEEVEC [Suspect]
     Dosage: 300 MG DAILY
     Route: 048
     Dates: start: 20040729, end: 20040805
  9. GLEEVEC [Suspect]
     Dosage: 400 MG DAILY
     Route: 048
     Dates: start: 20040806
  10. DIFFU K [Concomitant]
     Dates: start: 20040701
  11. OROCAL D(3) [Concomitant]
     Dosage: 2 DF DAILY

REACTIONS (8)
  - ECZEMA [None]
  - EOSINOPHILIA [None]
  - INSOMNIA [None]
  - PHOTOSENSITIVITY REACTION [None]
  - PRURITUS [None]
  - TOXIC SKIN ERUPTION [None]
  - TREMOR [None]
  - VASCULITIS [None]
